FAERS Safety Report 18123157 (Version 4)
Quarter: 2020Q3

REPORT INFORMATION
  Report Type: Spontaneous
  Country: SV (occurrence: SV)
  Receive Date: 20200807
  Receipt Date: 20200818
  Transmission Date: 20201103
  Serious: Yes (Other)
  Sender: FDA-Public Use
  Company Number: SV-PFIZER INC-2020294230

PATIENT
  Age: 29 Year
  Sex: Female

DRUGS (2)
  1. MISOPROSTOL. [Suspect]
     Active Substance: MISOPROSTOL
     Indication: UTERINE ATONY
     Dosage: 800 MG
     Route: 060
  2. METHYLERGOMETRINE [Concomitant]
     Active Substance: METHYLERGONOVINE MALEATE
     Dosage: 2 G (REPEATING THE DOSE 15 MINUTES LATER)
     Route: 042

REACTIONS (6)
  - Hyperthermia [Recovered/Resolved]
  - Neurological decompensation [Recovered/Resolved]
  - Respiratory rate increased [Recovered/Resolved]
  - Product use in unapproved indication [Unknown]
  - Off label use [Unknown]
  - Heart rate increased [Recovered/Resolved]
